FAERS Safety Report 17548932 (Version 1)
Quarter: 2020Q1

REPORT INFORMATION
  Report Type: Spontaneous
  Country: JP (occurrence: JP)
  Receive Date: 20200317
  Receipt Date: 20200317
  Transmission Date: 20200409
  Serious: Yes (Hospitalization, Other)
  Sender: FDA-Public Use
  Company Number: JP-B.I. PHARMACEUTICALS,INC./RIDGEFIELD-2020-NB-014616

PATIENT
  Age: 73 Year
  Sex: Male

DRUGS (5)
  1. BI-SIFROL [Suspect]
     Active Substance: PRAMIPEXOLE
     Route: 048
  2. BI-SIFROL [Suspect]
     Active Substance: PRAMIPEXOLE
     Indication: PARKINSON^S DISEASE
     Route: 048
  3. LEVODOPA [Concomitant]
     Active Substance: LEVODOPA
     Indication: PARKINSON^S DISEASE
     Route: 065
  4. LEVODOPA [Concomitant]
     Active Substance: LEVODOPA
     Route: 065
  5. BI-SIFROL [Suspect]
     Active Substance: PRAMIPEXOLE
     Route: 048

REACTIONS (3)
  - Parkinson^s disease [Unknown]
  - Impulse-control disorder [Unknown]
  - Asthenia [Unknown]
